FAERS Safety Report 8166678-4 (Version None)
Quarter: 2012Q1

REPORT INFORMATION
  Report Type: 
  Country: None (occurrence: None)
  Receive Date: 20120227
  Receipt Date: 20120216
  Transmission Date: 20120608
  Serious: Yes (Other)
  Sender: FDA-Public Use
  Company Number: US-CELGENEUS-163-21880-12020613

PATIENT
  Sex: Female

DRUGS (12)
  1. COLACE [Concomitant]
     Route: 065
  2. VICODIN [Concomitant]
     Route: 065
  3. ENALAPRIL MALEATE [Concomitant]
     Route: 065
  4. WARFARIN SODIUM [Concomitant]
     Route: 065
  5. MAGNESIUM [Concomitant]
     Route: 065
  6. FISH OIL [Concomitant]
     Route: 065
  7. CARDIZEM [Concomitant]
     Route: 065
  8. ALLOPURINOL [Concomitant]
     Route: 065
  9. REVLIMID [Suspect]
     Dosage: 15 MILLIGRAM
     Route: 048
     Dates: start: 20120120
  10. METOPROLOL SUCCINATE [Concomitant]
     Route: 065
  11. ASPIR-81 [Concomitant]
     Dosage: 81 MILLIGRAM
     Route: 065
  12. CALCIUM CARBONATE [Concomitant]
     Route: 065

REACTIONS (12)
  - SOMNOLENCE [None]
  - CONSTIPATION [None]
  - LETHARGY [None]
  - BONE PAIN [None]
  - DIARRHOEA [None]
  - MULTIPLE MYELOMA [None]
  - DIZZINESS [None]
  - MUSCULOSKELETAL DISORDER [None]
  - NAUSEA [None]
  - PAIN [None]
  - ASTHENIA [None]
  - DRUG INTOLERANCE [None]
